FAERS Safety Report 14900205 (Version 1)
Quarter: 2018Q2

REPORT INFORMATION
  Report Type: Spontaneous
  Country: FR (occurrence: FR)
  Receive Date: 20180516
  Receipt Date: 20180516
  Transmission Date: 20180711
  Serious: Yes (Other)
  Sender: FDA-Public Use
  Company Number: FR-MERCK KGAA-2047901

PATIENT
  Age: 62 Year
  Sex: Female

DRUGS (2)
  1. NOVOTHYROX [Suspect]
     Active Substance: LEVOTHYROXINE SODIUM
     Indication: POST PROCEDURAL HYPOTHYROIDISM
     Dates: start: 201707
  2. NOVOTHYROX [Suspect]
     Active Substance: LEVOTHYROXINE SODIUM

REACTIONS (16)
  - Amnesia [None]
  - Fall [None]
  - Visual impairment [None]
  - Blood pressure abnormal [None]
  - Hypothyroidism [None]
  - Personal relationship issue [None]
  - Headache [None]
  - Blood cholesterol increased [None]
  - Alopecia [None]
  - Disturbance in attention [None]
  - Dizziness [None]
  - Social avoidant behaviour [None]
  - Arrhythmia [None]
  - Fatigue [None]
  - Emotional distress [None]
  - Insomnia [None]

NARRATIVE: CASE EVENT DATE: 201707
